FAERS Safety Report 6648589-6 (Version None)
Quarter: 2010Q1

REPORT INFORMATION
  Report Type: 
  Country: None (occurrence: None)
  Receive Date: 20100324
  Receipt Date: 20100317
  Transmission Date: 20100710
  Serious: Yes (Hospitalization)
  Sender: FDA-Public Use
  Company Number: US-BAYER-US-2004-025254

PATIENT
  Age: 53 Year
  Sex: Female

DRUGS (23)
  1. BETASERON [Suspect]
     Indication: RELAPSING-REMITTING MULTIPLE SCLEROSIS
     Dosage: TOTAL DAILY DOSE: 8 MIU
     Route: 058
     Dates: start: 19930101
  2. BETASERON [Suspect]
     Route: 058
     Dates: start: 19940601
  3. LAXATIVES [Concomitant]
     Indication: CONSTIPATION
     Dosage: UNK, UNK
     Dates: start: 20040404, end: 20040408
  4. PAXIL [Concomitant]
     Indication: DEPRESSION
     Dosage: TOTAL DAILY DOSE: 20 MG
     Route: 048
     Dates: start: 20010101
  5. ACTONEL [Concomitant]
     Indication: OSTEOPOROSIS
     Dosage: TOTAL DAILY DOSE: 35 MG
     Dates: start: 20020101
  6. ALBUTEROL [Concomitant]
     Indication: ASTHMA
     Dosage: UNK, UNK
     Route: 055
     Dates: start: 19960101
  7. AMANTADINE HCL [Concomitant]
     Dosage: UNK, UNK
     Dates: start: 19930101
  8. AMBIEN [Concomitant]
     Indication: INSOMNIA
     Dates: start: 20010101
  9. BACLOFEN [Concomitant]
     Dates: start: 19990101
  10. BECONASE [Concomitant]
     Indication: ASTHMA
     Dosage: UNK, UNK
     Dates: start: 19960101
  11. EVISTA [Concomitant]
     Dosage: UNK, UNK
     Dates: start: 19970101
  12. GLUCOSAMINE W/CHONDROITIN [Concomitant]
     Dosage: UNK, UNK
     Dates: start: 20030101
  13. MACRODANTIN [Concomitant]
     Indication: CYSTITIS
     Dosage: UNK, UNK
     Dates: start: 20020101
  14. MIRALAX [Concomitant]
     Indication: CONSTIPATION
     Dosage: UNK, UNK
     Dates: start: 20010101
  15. PROTONIX [Concomitant]
     Indication: GASTROOESOPHAGEAL REFLUX DISEASE
     Dosage: UNK, UNK
     Dates: start: 20030101
  16. QVAR 40 [Concomitant]
     Indication: ASTHMA
     Dosage: UNK, UNK
     Dates: start: 19950101
  17. VALTREX [Concomitant]
     Indication: HERPES VIRUS INFECTION
     Dosage: UNK, UNK
     Dates: start: 20030101
  18. VITAMIN A [Concomitant]
     Dosage: UNK, UNK
     Dates: start: 19940101
  19. VITAMIN C [Concomitant]
     Dosage: UNK, UNK
     Dates: start: 19940101
  20. VITAMIN B COMPLEX TAB [Concomitant]
     Dosage: UNK, UNK
     Dates: start: 19940101
  21. MULTI-VITAMINS [Concomitant]
     Dosage: UNK, UNK
     Dates: start: 19940101
  22. CALCIUM [Concomitant]
     Dosage: UNK, UNK
     Dates: start: 19940101
  23. LOVAZA [Concomitant]
     Dosage: UNK, UNK
     Dates: start: 19940101

REACTIONS (2)
  - CONSTIPATION [None]
  - INJECTION SITE ABSCESS [None]
